FAERS Safety Report 12560957 (Version 1)
Quarter: 2016Q3

REPORT INFORMATION
  Report Type: Spontaneous
  Country: HN (occurrence: HN)
  Receive Date: 20160715
  Receipt Date: 20160715
  Transmission Date: 20161109
  Serious: Yes (Other)
  Sender: FDA-Public Use
  Company Number: PHHY2016HN095845

PATIENT
  Sex: Male
  Weight: 120.18 kg

DRUGS (1)
  1. EXFORGE [Suspect]
     Active Substance: AMLODIPINE BESYLATE\VALSARTAN
     Indication: HYPERTENSION
     Dosage: 5 MG AMLO/320 MG VAL,QD
     Route: 048

REACTIONS (2)
  - Thyroid cancer [Unknown]
  - Neck pain [Unknown]
